FAERS Safety Report 7612997-7 (Version None)
Quarter: 2011Q3

REPORT INFORMATION
  Report Type: 
  Country: None (occurrence: None)
  Receive Date: 20110713
  Receipt Date: 20110603
  Transmission Date: 20111222
  Serious: No
  Sender: FDA-Public Use
  Company Number: US-005497

PATIENT
  Sex: Male

DRUGS (13)
  1. PRILOSEC [Concomitant]
  2. OXYCODONE HCL [Concomitant]
  3. XANAX [Concomitant]
  4. METFORMIN HCL [Concomitant]
  5. ASPIRIN [Concomitant]
  6. GLYBURIDE [Concomitant]
  7. DEGARELIX (240 MG, 80 MG) [Suspect]
     Indication: PROSTATE CANCER
     Dosage: (240 MG 1X SUBCUTANEOUS), (80 MG 1X/MONTH SUBCUTANEOUS)
     Route: 058
     Dates: start: 20100601, end: 20101101
  8. DEGARELIX (240 MG, 80 MG) [Suspect]
     Indication: PROSTATE CANCER
     Dosage: (240 MG 1X SUBCUTANEOUS), (80 MG 1X/MONTH SUBCUTANEOUS)
     Route: 058
     Dates: start: 20110330, end: 20110330
  9. ATENOLOL [Concomitant]
  10. ZOLOFT [Concomitant]
  11. FLOMAX [Concomitant]
  12. METYCORTIN [Concomitant]
  13. HYDROCHLOROTHIAZID [Concomitant]

REACTIONS (1)
  - HALLUCINATION [None]
